FAERS Safety Report 8438214-6 (Version None)
Quarter: 2012Q2

REPORT INFORMATION
  Report Type: 
  Country: None (occurrence: None)
  Receive Date: 20120614
  Receipt Date: 20120608
  Transmission Date: 20120825
  Serious: Yes (Life-Threatening, Hospitalization)
  Sender: FDA-Public Use
  Company Number: GB-PFIZER INC-2012139584

PATIENT
  Age: 75 Year
  Sex: Female
  Weight: 73.7 kg

DRUGS (1)
  1. SULFASALAZINE [Suspect]
     Indication: RHEUMATOID ARTHRITIS
     Dosage: 1 GRAM
     Route: 048
     Dates: start: 20120323, end: 20120523

REACTIONS (2)
  - PYREXIA [None]
  - NEUTROPENIA [None]
